FAERS Safety Report 9120454 (Version 1)
Quarter: 2013Q1

REPORT INFORMATION
  Report Type: Spontaneous
  Country: US (occurrence: US)
  Receive Date: 20130226
  Receipt Date: 20130226
  Transmission Date: 20140127
  Serious: No
  Sender: FDA-Public Use
  Company Number: US-ASTRAZENECA-2013SE10960

PATIENT
  Sex: Male

DRUGS (2)
  1. SYMBICORT PMDI [Suspect]
     Indication: ASTHMA
     Dosage: 80/4.5, TWO PUFFS TWO TIMES A DAY
     Route: 055
     Dates: start: 201205
  2. SYMBICORT PMDI [Suspect]
     Indication: ASTHMA
     Dosage: 80/4.5, TWO PUFFS ONCE A DAY
     Route: 055

REACTIONS (4)
  - Sneezing [Recovered/Resolved]
  - Cough [Recovered/Resolved]
  - Intentional drug misuse [Unknown]
  - Drug ineffective [Unknown]
